FAERS Safety Report 9099164 (Version 4)
Quarter: 2016Q3

REPORT INFORMATION
  Report Type: Spontaneous
  Country: US (occurrence: US)
  Receive Date: 20130213
  Receipt Date: 20160927
  Transmission Date: 20161109
  Serious: Yes (Other)
  Sender: FDA-Public Use
  Company Number: US-BAYER-2013-017465

PATIENT
  Age: 64 Year
  Sex: Male

DRUGS (6)
  1. NIACIN. [Concomitant]
     Active Substance: NIACIN
  2. AVELOX [Suspect]
     Active Substance: MOXIFLOXACIN HYDROCHLORIDE
     Indication: SINUSITIS BACTERIAL
     Dosage: 400 MG, QD
     Route: 048
     Dates: start: 20110726, end: 20110815
  3. ACETYLSALICYLIC ACID (} 100 MG) [Concomitant]
     Active Substance: ASPIRIN
  4. LISINOPRIL. [Concomitant]
     Active Substance: LISINOPRIL
     Dosage: UNK
  5. FISH OIL [Concomitant]
     Active Substance: FISH OIL
  6. METOPROLOL. [Concomitant]
     Active Substance: METOPROLOL

REACTIONS (18)
  - Iris hypopigmentation [None]
  - Eye pain [None]
  - Quality of life decreased [None]
  - Intraocular pressure increased [None]
  - Lens disorder [None]
  - Visual field defect [None]
  - Cataract [None]
  - Incorrect drug administration duration [None]
  - Anhedonia [None]
  - Blindness transient [None]
  - Injury [None]
  - Emotional distress [None]
  - Pigment dispersion syndrome [None]
  - Photophobia [None]
  - Pain [None]
  - Eye injury [None]
  - Open angle glaucoma [None]
  - Uveitis [None]

NARRATIVE: CASE EVENT DATE: 20110807
